FAERS Safety Report 9835000 (Version 1)
Quarter: 2014Q1

REPORT INFORMATION
  Report Type: Spontaneous
  Country: US (occurrence: US)
  Receive Date: 20140122
  Receipt Date: 20140122
  Transmission Date: 20141002
  Serious: Yes (Other)
  Sender: FDA-Public Use
  Company Number: US-PFIZER INC-2014018773

PATIENT
  Sex: 0

DRUGS (1)
  1. LYRICA [Suspect]
     Indication: PAIN
     Dosage: UNK

REACTIONS (8)
  - Convulsion [Unknown]
  - Cerebrovascular accident [Unknown]
  - Muscle twitching [Unknown]
  - Blood creatine phosphokinase increased [Unknown]
  - Myositis [Unknown]
  - Balance disorder [Unknown]
  - Fall [Unknown]
  - Weight increased [Unknown]
